FAERS Safety Report 7579686-9 (Version None)
Quarter: 2011Q2

REPORT INFORMATION
  Report Type: 
  Country: None (occurrence: None)
  Receive Date: 20110629
  Receipt Date: 20110616
  Transmission Date: 20111010
  Serious: Yes (Hospitalization, Disabling, Other)
  Sender: FDA-Public Use
  Company Number: US-BAYER-201024896NA

PATIENT
  Age: 33 Year
  Sex: Female
  Weight: 68 kg

DRUGS (14)
  1. CLARITIN [Concomitant]
     Dosage: 10 MG, QD
  2. HEMOCYTE PLUS [Concomitant]
     Indication: IRON DEFICIENCY
  3. SUDAFED 12 HOUR [Concomitant]
     Dosage: UNK UNK, PRN
  4. YASMIN [Suspect]
     Indication: PREMENSTRUAL SYNDROME
     Dosage: UNK
     Route: 048
     Dates: start: 20041201, end: 20060201
  5. KLONOPIN [Concomitant]
     Indication: DEPRESSION
  6. LEXAPRO [Concomitant]
     Indication: NERVOUSNESS
  7. ZOLOFT [Concomitant]
     Indication: ANXIETY
  8. ADVIL LIQUI-GELS [Concomitant]
     Indication: HEADACHE
  9. SINGULAIR [Concomitant]
     Dosage: 10 MG, QD
     Route: 048
     Dates: start: 20051231
  10. AZITHROMYCIN [Concomitant]
     Dosage: 250 MG, BID
     Route: 048
     Dates: start: 20041222
  11. UNKNOWN DRUG [Concomitant]
  12. ADVAIR DISKUS 100/50 [Concomitant]
     Indication: ASTHMA
     Dosage: UNK UNK, BID
     Dates: start: 20041231
  13. ALBUTEROL SULFATE AUTOHALER [Concomitant]
     Dosage: UNK UNK, PRN
  14. SYMBICORT [Concomitant]
     Indication: ASTHMA
     Dosage: UNK
     Dates: start: 20040101

REACTIONS (12)
  - MENTAL DISORDER [None]
  - ABDOMINAL PAIN UPPER [None]
  - CHOLECYSTECTOMY [None]
  - PELVIC PAIN [None]
  - DECREASED APPETITE [None]
  - ABDOMINAL DISTENSION [None]
  - PORTAL VEIN THROMBOSIS [None]
  - PAIN [None]
  - NAUSEA [None]
  - VOMITING [None]
  - NERVOUS SYSTEM DISORDER [None]
  - GENERAL PHYSICAL CONDITION ABNORMAL [None]
